FAERS Safety Report 16765495 (Version 1)
Quarter: 2019Q3

REPORT INFORMATION
  Report Type: Spontaneous
  Country: CN (occurrence: CN)
  Receive Date: 20190903
  Receipt Date: 20190903
  Transmission Date: 20191005
  Serious: Yes (Other)
  Sender: FDA-Public Use
  Company Number: CN-ACTELION-A-CH2019-195052

PATIENT
  Age: 119 Day
  Weight: 5 kg

DRUGS (2)
  1. BOSENTAN. [Suspect]
     Active Substance: BOSENTAN
     Indication: CONGENITAL CARDIOVASCULAR ANOMALY
     Dosage: 10 MG, BID
     Route: 048
  2. ILOPROST. [Suspect]
     Active Substance: ILOPROST
     Indication: CONGENITAL CARDIOVASCULAR ANOMALY
     Dosage: 2500 NG 6-8 TIMES, QD

REACTIONS (2)
  - Arterial angioplasty [Unknown]
  - Pulmonary artery stenosis [Unknown]
